FAERS Safety Report 7992455-0 (Version None)
Quarter: 2011Q4

REPORT INFORMATION
  Report Type: 
  Country: None (occurrence: None)
  Receive Date: 20111219
  Receipt Date: 20111208
  Transmission Date: 20120403
  Serious: Yes (Hospitalization, Other)
  Sender: FDA-Public Use
  Company Number: PHEH2011US07036

PATIENT
  Sex: Female

DRUGS (2)
  1. TASIGNA [Suspect]
     Indication: HEPATIC NEOPLASM MALIGNANT
     Dosage: 150 MG, BID
     Route: 048
     Dates: start: 20110719
  2. TASIGNA [Suspect]
     Indication: MALIGNANT SOFT TISSUE NEOPLASM

REACTIONS (2)
  - PNEUMONIA [None]
  - CEREBROVASCULAR ACCIDENT [None]
